FAERS Safety Report 9341687 (Version 2)
Quarter: 2013Q3

REPORT INFORMATION
  Report Type: Spontaneous
  Country: US (occurrence: US)
  Receive Date: 20130611
  Receipt Date: 20130814
  Transmission Date: 20140515
  Serious: No
  Sender: FDA-Public Use
  Company Number: US-PFIZER INC-2013173441

PATIENT
  Age: 63 Year
  Sex: Male

DRUGS (6)
  1. SUTENT [Suspect]
     Indication: GASTROINTESTINAL NEOPLASM
     Dosage: 50 MG, CYCLIC (QD 28 DAYS ON/14 OFF)
     Route: 048
     Dates: start: 20091222, end: 201307
  2. POTASSIUM CHLORIDE [Concomitant]
     Dosage: UNK
  3. LISINOPRIL [Concomitant]
     Dosage: UNK
  4. OMEPRAZOLE [Concomitant]
     Dosage: UNK
  5. VICODIN [Concomitant]
     Dosage: UNK
  6. FLURAZEPAM [Concomitant]
     Dosage: UNK

REACTIONS (3)
  - Asthenia [Unknown]
  - Decreased appetite [Unknown]
  - Fatigue [Unknown]
